FAERS Safety Report 21533929 (Version 2)
Quarter: 2022Q4

REPORT INFORMATION
  Report Type: Spontaneous
  Country: US (occurrence: US)
  Receive Date: 20221101
  Receipt Date: 20221226
  Transmission Date: 20230113
  Serious: No
  Sender: FDA-Public Use
  Company Number: US-LEO Pharma-346292

PATIENT
  Sex: Male

DRUGS (2)
  1. FLUOCINONIDE [Concomitant]
     Active Substance: FLUOCINONIDE
     Indication: Product used for unknown indication
  2. ADBRY [Suspect]
     Active Substance: TRALOKINUMAB-LDRM
     Indication: Dermatitis atopic
     Dosage: 600 MG FOR THE INITIAL DOSE THEN MEDICATION WAS DISCONTINUED
     Route: 058
     Dates: start: 202209

REACTIONS (1)
  - Urticaria [Recovered/Resolved]
